FAERS Safety Report 9686212 (Version 1)
Quarter: 2013Q4

REPORT INFORMATION
  Report Type: Spontaneous
  Country: US (occurrence: US)
  Receive Date: 20131113
  Receipt Date: 20131113
  Transmission Date: 20140711
  Serious: Yes (Disabling, Other)
  Sender: FDA-Public Use
  Company Number: US-JNJFOC-20131101912

PATIENT
  Sex: Male
  Weight: 81.65 kg

DRUGS (1)
  1. HALDOL [Suspect]
     Indication: PAIN
     Route: 065
     Dates: start: 2012, end: 2012

REACTIONS (9)
  - Disability [Unknown]
  - Dyskinesia [Unknown]
  - Tongue disorder [Unknown]
  - Sinusitis [Unknown]
  - Feeling abnormal [Unknown]
  - Psychomotor hyperactivity [Unknown]
  - Off label use [Unknown]
  - Drug ineffective [Not Recovered/Not Resolved]
  - Adverse event [Not Recovered/Not Resolved]
